FAERS Safety Report 8496578-1 (Version None)
Quarter: 2012Q2

REPORT INFORMATION
  Report Type: 
  Country: None (occurrence: None)
  Receive Date: 20120629
  Receipt Date: 20120619
  Transmission Date: 20120825
  Serious: Yes (Other)
  Sender: FDA-Public Use
  Company Number: VAL_00777_2012

PATIENT
  Age: 16 Year
  Sex: Male

DRUGS (5)
  1. CARBAMAZEPINE [Suspect]
     Indication: PRODUCT USED FOR UNKNOWN INDICATION
     Dosage: (800 MG, ]DAILY]), (400 MG, [DAILY]), (400 MG, [DAILY])
  2. VALPROATE SODIUM [Suspect]
     Indication: MANIA
     Dosage: (DF)
     Dates: start: 20100101
  3. VALPROATE SODIUM [Suspect]
     Indication: MANIA
     Dosage: (DF)
     Dates: start: 20100101
  4. LEVOTHYROXINE SODIUM [Concomitant]
  5. OLANZAPINE [Concomitant]

REACTIONS (7)
  - AMMONIA INCREASED [None]
  - TOXICITY TO VARIOUS AGENTS [None]
  - DISORIENTATION [None]
  - URINARY INCONTINENCE [None]
  - MANIA [None]
  - INAPPROPRIATE ANTIDIURETIC HORMONE SECRETION [None]
  - DEPRESSION [None]
